FAERS Safety Report 14472929 (Version 2)
Quarter: 2018Q1

REPORT INFORMATION
  Report Type: Spontaneous
  Country: US (occurrence: US)
  Receive Date: 20180201
  Receipt Date: 20180329
  Transmission Date: 20180509
  Serious: Yes (Hospitalization, Other)
  Sender: FDA-Public Use
  Company Number: US-INCYTE CORPORATION-2018IN000625

PATIENT

DRUGS (10)
  1. JAKAFI [Suspect]
     Active Substance: RUXOLITINIB
     Indication: IMMUNE SYSTEM DISORDER
     Dosage: 5 MG, BID
     Route: 048
     Dates: start: 20170914, end: 20180115
  2. JAKAFI [Suspect]
     Active Substance: RUXOLITINIB
     Indication: GENE MUTATION
     Dosage: 5 MG, BID
     Route: 048
     Dates: start: 201710
  3. JAKAFI [Suspect]
     Active Substance: RUXOLITINIB
     Dosage: 5 MG, QD  (X 2WEEKS)
     Route: 048
     Dates: start: 20170914, end: 201709
  4. JAKAFI [Suspect]
     Active Substance: RUXOLITINIB
     Dosage: 2.5 MG, BID
     Route: 048
     Dates: start: 20171128, end: 20180115
  5. ATOVAQUONE. [Concomitant]
     Active Substance: ATOVAQUONE
     Indication: IMMUNODEFICIENCY
  6. AZITHROMYCIN ANHYDROUS. [Concomitant]
     Active Substance: AZITHROMYCIN ANHYDROUS
     Indication: LUNG DISORDER
  7. JAKAFI [Suspect]
     Active Substance: RUXOLITINIB
     Dosage: 5 MG, BID
     Route: 048
     Dates: start: 201709, end: 20180115
  8. JAKAFI [Suspect]
     Active Substance: RUXOLITINIB
     Dosage: 2.5 MG, BID
     Route: 048
     Dates: start: 20171129, end: 20180115
  9. FAMVIR [Suspect]
     Active Substance: FAMCICLOVIR
     Indication: HERPES ZOSTER INFECTION NEUROLOGICAL
  10. PRIVIGEN [Concomitant]
     Active Substance: HUMAN IMMUNOGLOBULIN G
     Indication: CHRONIC SINUSITIS

REACTIONS (9)
  - Aphasia [Unknown]
  - Ear infection [Unknown]
  - Odynophagia [Unknown]
  - Oesophageal candidiasis [Unknown]
  - Herpes zoster [Recovered/Resolved]
  - White blood cell count decreased [Unknown]
  - Sinusitis [Unknown]
  - Off label use [Unknown]
  - Incorrect dose administered [Unknown]

NARRATIVE: CASE EVENT DATE: 20170914
